FAERS Safety Report 24933401 (Version 1)
Quarter: 2025Q1

REPORT INFORMATION
  Report Type: Spontaneous
  Country: US (occurrence: US)
  Receive Date: 20250206
  Receipt Date: 20250206
  Transmission Date: 20250409
  Serious: No
  Sender: STALLERGENES
  Company Number: US-STALCOR-2024-AER-02906

PATIENT
  Sex: Male

DRUGS (2)
  1. PALFORZIA [Suspect]
     Active Substance: PEANUT
     Indication: Food allergy
     Dosage: 4X20MG: LVL6: MIX CONTENTS OF CAPSULES WELL WITH SEMISOLID FOOD AS DIRECTED AND CONSUME ONCE DAILY A
     Route: 048
  2. PALFORZIA [Suspect]
     Active Substance: PEANUT
     Dosage: MAINTENANCE DOSE
     Route: 048

REACTIONS (3)
  - Urticaria [Not Recovered/Not Resolved]
  - Wheezing [Not Recovered/Not Resolved]
  - Product dose omission issue [Not Recovered/Not Resolved]
